FAERS Safety Report 5381279-9 (Version None)
Quarter: 2007Q3

REPORT INFORMATION
  Report Type: 
  Country: None (occurrence: None)
  Receive Date: 20070702
  Receipt Date: 20070328
  Transmission Date: 20080115
  Serious: Yes (Hospitalization)
  Sender: FDA-Public Use
  Company Number: SPV1-2007-01252

PATIENT
  Age: 55 Year
  Sex: Male

DRUGS (3)
  1. PENTASA [Suspect]
     Indication: CROHN'S DISEASE
     Dosage: 4 G, DAILY, ORAL; 2 G DAILY
     Route: 048
     Dates: start: 20060523, end: 20070120
  2. PENTASA [Suspect]
     Indication: CROHN'S DISEASE
     Dosage: 4 G, DAILY, ORAL; 2 G DAILY
     Route: 048
     Dates: start: 20070309, end: 20070522
  3. OMEPRAZOLE [Concomitant]

REACTIONS (3)
  - LIPASE INCREASED [None]
  - NEUTROPHIL COUNT DECREASED [None]
  - PANCREATITIS [None]
